FAERS Safety Report 8610619-X (Version None)
Quarter: 2012Q3

REPORT INFORMATION
  Report Type: 
  Country: None (occurrence: None)
  Receive Date: 20120822
  Receipt Date: 20120820
  Transmission Date: 20120928
  Serious: Yes (Other)
  Sender: FDA-Public Use
  Company Number: PHHY2012US072057

PATIENT
  Age: 41 Year
  Sex: Male

DRUGS (1)
  1. ZOLEDRONIC ACID [Suspect]
     Indication: BONE PAIN
     Dosage: 5 MG, UNK
     Route: 042

REACTIONS (3)
  - PLEURAL FIBROSIS [None]
  - DYSPNOEA [None]
  - PLEURAL EFFUSION [None]
